FAERS Safety Report 20824222 (Version 1)
Quarter: 2022Q2

REPORT INFORMATION
  Report Type: Spontaneous
  Country: FR (occurrence: FR)
  Receive Date: 20220513
  Receipt Date: 20220513
  Transmission Date: 20220720
  Serious: Yes (Hospitalization)
  Sender: FDA-Public Use
  Company Number: None

PATIENT
  Age: 11 Year
  Sex: Female

DRUGS (8)
  1. ACETAMINOPHEN [Suspect]
     Active Substance: ACETAMINOPHEN
     Indication: Abdominal pain
     Dosage: 500 MG, Q4H
     Route: 048
     Dates: start: 20220327, end: 20220403
  2. ACETAMINOPHEN [Suspect]
     Active Substance: ACETAMINOPHEN
     Dosage: 500 MG, Q4H
     Route: 048
     Dates: start: 20220411, end: 20220420
  3. VOGALENE [Suspect]
     Active Substance: METOPIMAZINE
     Indication: Vomiting
     Dosage: 7.5 MG, Q12H
     Route: 048
     Dates: start: 20220327, end: 20220403
  4. RACECADOTRIL [Suspect]
     Active Substance: RACECADOTRIL
     Indication: Diarrhoea
     Dosage: 180 MG, QD
     Route: 048
     Dates: start: 20220331, end: 20220403
  5. SMECTA [Suspect]
     Active Substance: MONTMORILLONITE
     Indication: Diarrhoea
     Dosage: 3 G, Q8H
     Route: 048
     Dates: start: 20220327, end: 20220331
  6. AUGMENTIN [Suspect]
     Active Substance: AMOXICILLIN\CLAVULANATE POTASSIUM
     Indication: Skin infection
     Dosage: 3 G, QD
     Route: 048
     Dates: start: 20220213, end: 20220218
  7. PHLOROGLUCINOL [Suspect]
     Active Substance: PHLOROGLUCINOL
     Indication: Abdominal pain
     Dosage: 240 MG, QD
     Route: 048
     Dates: start: 20220327, end: 20220403
  8. PHLOROGLUCINOL [Suspect]
     Active Substance: PHLOROGLUCINOL
     Dosage: 240 MG, QD
     Route: 048
     Dates: start: 20220411, end: 20220420

REACTIONS (1)
  - Drug reaction with eosinophilia and systemic symptoms [Recovering/Resolving]

NARRATIVE: CASE EVENT DATE: 20220412
